FAERS Safety Report 4566676-3 (Version None)
Quarter: 2005Q1

REPORT INFORMATION
  Report Type: 
  Country: None (occurrence: None)
  Receive Date: 20050201
  Receipt Date: 20030121
  Transmission Date: 20050727
  Serious: Yes (Hospitalization)
  Sender: FDA-Public Use
  Company Number: US-MERCK-0301USA02079

PATIENT
  Age: 58 Year
  Sex: Male
  Weight: 88 kg

DRUGS (2)
  1. VIOXX [Suspect]
     Indication: SPONDYLITIS
     Route: 048
     Dates: end: 20010401
  2. VIOXX [Suspect]
     Indication: SPINAL OSTEOARTHRITIS
     Route: 048
     Dates: end: 20010401

REACTIONS (56)
  - ACUTE MYOCARDIAL INFARCTION [None]
  - AMNESIA [None]
  - ANXIETY [None]
  - BLOOD CHOLESTEROL INCREASED [None]
  - BLOOD PRESSURE INADEQUATELY CONTROLLED [None]
  - BRADYCARDIA [None]
  - CAROTID ARTERY STENOSIS [None]
  - CELLULITIS [None]
  - CHRONIC OBSTRUCTIVE PULMONARY DISEASE [None]
  - COLONIC POLYP [None]
  - CONTUSION [None]
  - CORONARY ARTERY DISEASE [None]
  - DECREASED ACTIVITY [None]
  - DEPRESSION [None]
  - DIZZINESS [None]
  - DRUG HYPERSENSITIVITY [None]
  - EMPHYSEMA [None]
  - EXCORIATION [None]
  - FALL [None]
  - FATIGUE [None]
  - FIBROSIS [None]
  - GASTRITIS [None]
  - GLUCOSE TOLERANCE IMPAIRED [None]
  - GROIN PAIN [None]
  - HEPATIC CIRRHOSIS [None]
  - INSOMNIA [None]
  - INTERVERTEBRAL DISC PROTRUSION [None]
  - ISCHAEMIC CARDIOMYOPATHY [None]
  - LUMBAR RADICULOPATHY [None]
  - MALNUTRITION [None]
  - MUSCLE SPASMS [None]
  - MUSCULOSKELETAL DISORDER [None]
  - MYOCARDIAL ISCHAEMIA [None]
  - NERVE ROOT COMPRESSION [None]
  - NIGHTMARE [None]
  - ONYCHOGRYPHOSIS [None]
  - OSTEOPENIA [None]
  - PERICARDITIS [None]
  - PERIPHERAL VASCULAR DISORDER [None]
  - PNEUMONIA [None]
  - PORTAL HYPERTENSION [None]
  - RECTAL HAEMORRHAGE [None]
  - RENAL CYST [None]
  - RENAL FAILURE [None]
  - RIB FRACTURE [None]
  - ROTATOR CUFF SYNDROME [None]
  - SCIATICA [None]
  - SHOULDER DEFORMITY [None]
  - SINUS BRADYCARDIA [None]
  - SLEEP APNOEA SYNDROME [None]
  - SPINAL DECOMPRESSION [None]
  - TENDONITIS [None]
  - THROMBOSIS [None]
  - TINEA CRURIS [None]
  - VENTRICULAR HYPOKINESIA [None]
  - WEIGHT DECREASED [None]
